FAERS Safety Report 5957003-5 (Version None)
Quarter: 2008Q4

REPORT INFORMATION
  Report Type: 
  Country: None (occurrence: None)
  Receive Date: 20081118
  Receipt Date: 20080815
  Transmission Date: 20090506
  Serious: No
  Sender: FDA-Public Use
  Company Number: A0742861A

PATIENT
  Age: 83 Year
  Sex: Male

DRUGS (11)
  1. COREG CR [Suspect]
     Indication: HYPERTENSION
     Dosage: 20MG PER DAY
     Route: 048
     Dates: start: 20070101
  2. VYTORIN [Concomitant]
  3. NORVASC [Concomitant]
  4. ASPIRIN [Concomitant]
  5. SPIRONOLACTONE [Concomitant]
  6. LASIX [Concomitant]
  7. ALTACE [Concomitant]
  8. FUROSEMIDE [Concomitant]
  9. TERAZOSIN HCL [Concomitant]
  10. PEPCID [Concomitant]
  11. MECLIZINE [Concomitant]

REACTIONS (2)
  - CARDIAC FLUTTER [None]
  - HEART RATE IRREGULAR [None]
